FAERS Safety Report 7391425-3 (Version None)
Quarter: 2011Q2

REPORT INFORMATION
  Report Type: 
  Country: None (occurrence: None)
  Receive Date: 20110404
  Receipt Date: 20110329
  Transmission Date: 20111010
  Serious: Yes (Other)
  Sender: FDA-Public Use
  Company Number: US-ROXANE LABORATORIES, INC.-2011-RO-00419RO

PATIENT
  Age: 38 Year
  Sex: Female

DRUGS (2)
  1. MORPHINE [Suspect]
     Indication: BACK PAIN
     Dosage: 40 MG
     Route: 037
  2. MORPHINE [Suspect]
     Dosage: 5 MG
     Route: 030

REACTIONS (2)
  - GRANULOMA [None]
  - DRUG ADMINISTRATION ERROR [None]
